FAERS Safety Report 22121798 (Version 2)
Quarter: 2023Q2

REPORT INFORMATION
  Report Type: Spontaneous
  Country: PT (occurrence: PT)
  Receive Date: 20230321
  Receipt Date: 20230420
  Transmission Date: 20230722
  Serious: Yes (Other)
  Sender: FDA-Public Use
  Company Number: PT-TEVA-2023-PT-2868403

PATIENT
  Age: 49 Year
  Sex: Male

DRUGS (3)
  1. AMOXICILLIN\CLAVULANATE POTASSIUM [Suspect]
     Active Substance: AMOXICILLIN\CLAVULANATE POTASSIUM
     Indication: Tonsillitis
     Dosage: 875MG+125MG SCHEDULED TO RECEIVE EVERY 12 HOURS FOR 8 DAYS
     Route: 065
  2. IBUPROFEN [Suspect]
     Active Substance: IBUPROFEN
     Indication: Tonsillitis
     Dosage: 1200 MILLIGRAM DAILY; 600MG SCHEDULED TO RECEIVE EVERY 12 HOURS FOR 8 DAYS
     Route: 065
  3. PERINDOPRIL [Suspect]
     Active Substance: PERINDOPRIL
     Indication: Hypertension
     Route: 065

REACTIONS (7)
  - Anaphylactic reaction [Unknown]
  - Type I hypersensitivity [Unknown]
  - Drug hypersensitivity [Unknown]
  - Pruritus [Recovered/Resolved]
  - Erythema [Recovered/Resolved]
  - Face oedema [Recovered/Resolved]
  - Dyspnoea [Recovered/Resolved]
